FAERS Safety Report 4745771-X (Version None)
Quarter: 2005Q3

REPORT INFORMATION
  Report Type: 
  Country: None (occurrence: None)
  Receive Date: 20050815
  Receipt Date: 20050815
  Transmission Date: 20060218
  Serious: Yes (Other)
  Sender: FDA-Public Use
  Company Number: None

PATIENT
  Age: 24 Year
  Sex: Male
  Weight: 74.8435 kg

DRUGS (1)
  1. DEPAKOTE [Suspect]
     Indication: SUICIDAL IDEATION
     Dosage: 250MG  TID   ORAL
     Route: 048
     Dates: start: 20050808, end: 20050810

REACTIONS (1)
  - STEVENS-JOHNSON SYNDROME [None]
